FAERS Safety Report 20589323 (Version 1)
Quarter: 2022Q1

REPORT INFORMATION
  Report Type: Spontaneous
  Country: US (occurrence: None)
  Receive Date: 20220312
  Receipt Date: 20220312
  Transmission Date: 20220424
  Serious: Yes (Hospitalization)
  Sender: FDA-Public Use
  Company Number: None

PATIENT
  Age: 61 Year
  Sex: Female

DRUGS (1)
  1. ZOLINZA [Suspect]
     Active Substance: VORINOSTAT
     Dosage: FREQUENCY : DAILY;?
     Route: 048

REACTIONS (2)
  - Pyrexia [None]
  - Hyponatraemia [None]

NARRATIVE: CASE EVENT DATE: 20220312
